FAERS Safety Report 14593682 (Version 1)
Quarter: 2018Q1

REPORT INFORMATION
  Report Type: Report from Study
  Country: ZA (occurrence: ZA)
  Receive Date: 20180302
  Receipt Date: 20180302
  Transmission Date: 20180509
  Serious: Yes (Hospitalization)
  Sender: FDA-Public Use
  Company Number: ZA-NOVOPROD-587406

PATIENT
  Age: 73 Year
  Sex: Female

DRUGS (5)
  1. PURICOS [Concomitant]
     Active Substance: ALLOPURINOL
     Dosage: UNK
  2. ASPAVOR [Concomitant]
     Active Substance: ATORVASTATIN
  3. NOVOMIX 30 FLEXPEN [Suspect]
     Active Substance: INSULIN ASPART
     Indication: TYPE 2 DIABETES MELLITUS
     Dosage: 40 (24 UNITS AT BREAKFAST AND 16 UNITS AT SUPPER) IU BID
     Route: 058
  4. VICTOZA [Suspect]
     Active Substance: LIRAGLUTIDE
     Indication: TYPE 2 DIABETES MELLITUS
     Dosage: 1.8 MG
     Route: 058
  5. ECOTRIN [Concomitant]
     Active Substance: ASPIRIN
     Dosage: UNK

REACTIONS (3)
  - Kidney infection [Not Recovered/Not Resolved]
  - Drug dose titration not performed [Unknown]
  - Nausea [Unknown]
